FAERS Safety Report 25482705 (Version 1)
Quarter: 2025Q2

REPORT INFORMATION
  Report Type: Spontaneous
  Country: US (occurrence: None)
  Receive Date: 20250626
  Receipt Date: 20250626
  Transmission Date: 20250716
  Serious: No
  Sender: OREXO
  Company Number: US-Orexo US, Inc.-ORE202506-000035

PATIENT
  Sex: Female
  Weight: 20.8 kg

DRUGS (1)
  1. ZUBSOLV [Suspect]
     Active Substance: BUPRENORPHINE HYDROCHLORIDE\NALOXONE HYDROCHLORIDE
     Indication: Drug use disorder
     Route: 060
     Dates: start: 20250610

REACTIONS (2)
  - Tongue ulceration [Unknown]
  - Condition aggravated [Unknown]
